FAERS Safety Report 15892881 (Version 1)
Quarter: 2019Q1

REPORT INFORMATION
  Report Type: Report from Study
  Country: US (occurrence: US)
  Receive Date: 20190130
  Receipt Date: 20190130
  Transmission Date: 20190417
  Serious: No
  Sender: FDA-Public Use
  Company Number: US-EXELIXIS-CABO-18016886

PATIENT
  Age: 33 Year
  Sex: Female

DRUGS (3)
  1. LISINOPRIL. [Concomitant]
     Active Substance: LISINOPRIL
  2. COMETRIQ [Suspect]
     Active Substance: CABOZANTINIB S-MALATE
     Indication: THYROID CANCER
     Dosage: 140 MG, QD
     Route: 048
     Dates: start: 20181104
  3. LEVOTHYROXINE SODIUM. [Concomitant]
     Active Substance: LEVOTHYROXINE SODIUM

REACTIONS (7)
  - Diarrhoea [Unknown]
  - Paraesthesia [Unknown]
  - Chills [Unknown]
  - Myalgia [Unknown]
  - Vomiting [Unknown]
  - Pain in extremity [Unknown]
  - Decreased appetite [Unknown]

NARRATIVE: CASE EVENT DATE: 201811
